FAERS Safety Report 7078555-0 (Version None)
Quarter: 2010Q4

REPORT INFORMATION
  Report Type: 
  Country: None (occurrence: None)
  Receive Date: 20101102
  Receipt Date: 20101027
  Transmission Date: 20110411
  Serious: Yes (Death, Other)
  Sender: FDA-Public Use
  Company Number: IL-SANOFI-AVENTIS-2010SA048368

PATIENT
  Age: 74 Year

DRUGS (2)
  1. TAXOTERE [Suspect]
  2. CISPLATIN [Concomitant]
     Indication: HEAD AND NECK CANCER

REACTIONS (6)
  - LARYNGEAL OEDEMA [None]
  - LUNG INFILTRATION [None]
  - PULMONARY CONGESTION [None]
  - PULMONARY OEDEMA [None]
  - PYREXIA [None]
  - SEPSIS [None]
